FAERS Safety Report 10094663 (Version 1)
Quarter: 2014Q2

REPORT INFORMATION
  Report Type: Spontaneous
  Country: US (occurrence: None)
  Receive Date: 20140411
  Receipt Date: 20140411
  Transmission Date: 20141212
  Serious: No
  Sender: FDA-Public Use
  Company Number: 2014US003055

PATIENT
  Age: 46 Year
  Sex: Male

DRUGS (1)
  1. ICLUSING [Suspect]
     Indication: CHRONIC MYELOID LEUKAEMIA
     Route: 048
     Dates: start: 20140224

REACTIONS (2)
  - Myalgia [None]
  - Fatigue [None]
